FAERS Safety Report 17010272 (Version 8)
Quarter: 2021Q3

REPORT INFORMATION
  Report Type: Spontaneous
  Country: US (occurrence: US)
  Receive Date: 20191108
  Receipt Date: 20210915
  Transmission Date: 20211014
  Serious: No
  Sender: FDA-Public Use
  Company Number: US-PFIZER INC-2019484344

PATIENT
  Age: 82 Year
  Sex: Female
  Weight: 97.52 kg

DRUGS (3)
  1. XELJANZ XR [Suspect]
     Active Substance: TOFACITINIB CITRATE
     Dosage: 11 MG, 1X/DAY
     Route: 048
  2. XELJANZ XR [Suspect]
     Active Substance: TOFACITINIB CITRATE
     Indication: RHEUMATOID ARTHRITIS
     Dosage: 11 MG, DAILY
     Route: 048
  3. XELJANZ XR [Suspect]
     Active Substance: TOFACITINIB CITRATE
     Dosage: 11 MG, ALTERNATE DAY
     Route: 048
     Dates: start: 20201211

REACTIONS (13)
  - Genital herpes [Unknown]
  - Weight increased [Unknown]
  - Folliculitis [Not Recovered/Not Resolved]
  - Seborrhoeic dermatitis [Unknown]
  - Skin irritation [Unknown]
  - Dandruff [Unknown]
  - Fatigue [Unknown]
  - Off label use [Unknown]
  - Pain [Unknown]
  - Malaise [Unknown]
  - Hypoacusis [Unknown]
  - Memory impairment [Unknown]
  - Sexually transmitted disease [Unknown]

NARRATIVE: CASE EVENT DATE: 2017
